FAERS Safety Report 18764346 (Version 2)
Quarter: 2021Q1

REPORT INFORMATION
  Report Type: Spontaneous
  Country: US (occurrence: US)
  Receive Date: 20210120
  Receipt Date: 20210218
  Transmission Date: 20210419
  Serious: Yes (Other)
  Sender: FDA-Public Use
  Company Number: US-009507513-2101USA008738

PATIENT
  Age: 62 Year
  Sex: Male

DRUGS (2)
  1. KEYTRUDA [Suspect]
     Active Substance: PEMBROLIZUMAB
     Indication: PANCREATIC CARCINOMA METASTATIC
     Dosage: UNK
     Dates: start: 201810
  2. LEUPROLIDE [Concomitant]
     Active Substance: LEUPROLIDE
     Indication: PANCREATIC CARCINOMA METASTATIC
     Dosage: UNK
     Dates: start: 201810

REACTIONS (2)
  - Off label use [Unknown]
  - Psoriatic arthropathy [Recovering/Resolving]

NARRATIVE: CASE EVENT DATE: 201810
